FAERS Safety Report 6693974-X (Version None)
Quarter: 2010Q2

REPORT INFORMATION
  Report Type: 
  Country: None (occurrence: None)
  Receive Date: 20100423
  Receipt Date: 20100412
  Transmission Date: 20101027
  Serious: Yes (Other)
  Sender: FDA-Public Use
  Company Number: GB-PFIZER INC-2010045563

PATIENT

DRUGS (2)
  1. PHENYTOIN SODIUM CAP [Suspect]
     Indication: EPILEPSY
  2. CARBAMAZEPINE [Concomitant]

REACTIONS (1)
  - PULMONARY FIBROSIS [None]
